FAERS Safety Report 20374575 (Version 1)
Quarter: 2022Q1

REPORT INFORMATION
  Report Type: Spontaneous
  Country: US (occurrence: None)
  Receive Date: 20220124
  Receipt Date: 20220124
  Transmission Date: 20220423
  Serious: Yes (Other)
  Sender: FDA-Public Use
  Company Number: None

PATIENT
  Weight: 119.7 kg

DRUGS (5)
  1. FINASTERIDE [Suspect]
     Active Substance: FINASTERIDE
  2. METOPROLOL [Concomitant]
     Active Substance: METOPROLOL
  3. FLECAINIDE [Concomitant]
     Active Substance: FLECAINIDE
  4. TAMSULOSIN [Concomitant]
     Active Substance: TAMSULOSIN
  5. XARELTO [Concomitant]
     Active Substance: RIVAROXABAN

REACTIONS (1)
  - Erectile dysfunction [None]
